FAERS Safety Report 6695772-X (Version None)
Quarter: 2010Q2

REPORT INFORMATION
  Report Type: 
  Country: None (occurrence: None)
  Receive Date: 20100423
  Receipt Date: 20100423
  Transmission Date: 20101027
  Serious: Yes (Life-Threatening, Hospitalization, Other)
  Sender: FDA-Public Use
  Company Number: None

PATIENT
  Age: 60 Year
  Sex: Male
  Weight: 110.2241 kg

DRUGS (1)
  1. ABILIFY [Suspect]
     Indication: DEPRESSION
     Dosage: 20MG ONCE A DAY PO
     Route: 048
     Dates: start: 20100215, end: 20100410

REACTIONS (9)
  - BODY TEMPERATURE INCREASED [None]
  - CONFUSIONAL STATE [None]
  - CONVULSION [None]
  - MASKED FACIES [None]
  - MUSCLE SPASMS [None]
  - MUSCULOSKELETAL STIFFNESS [None]
  - RASH [None]
  - RESPIRATORY ARREST [None]
  - WEIGHT INCREASED [None]
